FAERS Safety Report 6492133-3 (Version None)
Quarter: 2009Q4

REPORT INFORMATION
  Report Type: 
  Country: None (occurrence: None)
  Receive Date: 20091214
  Receipt Date: 20091203
  Transmission Date: 20100525
  Serious: Yes (Other)
  Sender: FDA-Public Use
  Company Number: GB-RANBAXY-2009RR-29582

PATIENT
  Age: 58 Year
  Sex: Male

DRUGS (6)
  1. FLUCONAZOLE [Suspect]
     Indication: ANTIFUNGAL PROPHYLAXIS
  2. CYCLOPHOSPHAMIDE [Concomitant]
     Indication: MANTLE CELL LYMPHOMA
  3. DEXAMETHASONE TAB [Concomitant]
  4. DOXORUBICIN [Concomitant]
  5. RITUXIMAB [Concomitant]
     Indication: MANTLE CELL LYMPHOMA
  6. VINCRISTINE [Concomitant]
     Indication: MANTLE CELL LYMPHOMA

REACTIONS (1)
  - DRUG RESISTANCE [None]
